FAERS Safety Report 10761004 (Version 1)
Quarter: 2015Q1

REPORT INFORMATION
  Report Type: Spontaneous
  Country: US (occurrence: None)
  Receive Date: 20150202
  Receipt Date: 20150202
  Transmission Date: 20150721
  Serious: Yes (Hospitalization, Other)
  Sender: FDA-Public Use
  Company Number: CPI 6733

PATIENT
  Age: 57 Year
  Sex: Male

DRUGS (2)
  1. CONIVAPTAN [Suspect]
     Active Substance: CONIVAPTAN
     Indication: BRAIN OEDEMA
     Dosage: 20MG OVER 30 MINUTES IV
     Route: 042
     Dates: start: 2014
  2. CONIVAPTAN [Suspect]
     Active Substance: CONIVAPTAN
     Indication: BRAIN OEDEMA
     Dosage: 20MG OVER 24 HOUR IV; POST-OP
     Route: 042
     Dates: start: 2014

REACTIONS (2)
  - Pneumonia aspiration [None]
  - Respiratory failure [None]

NARRATIVE: CASE EVENT DATE: 2014
